FAERS Safety Report 7736434-7 (Version None)
Quarter: 2011Q3

REPORT INFORMATION
  Report Type: 
  Country: None (occurrence: None)
  Receive Date: 20110902
  Receipt Date: 20110829
  Transmission Date: 20111222
  Serious: Yes (Hospitalization)
  Sender: FDA-Public Use
  Company Number: JPI-P-016862

PATIENT
  Age: 46 Year
  Sex: Female
  Weight: 72.5755 kg

DRUGS (11)
  1. TOPIRAMATE [Concomitant]
  2. ALPRAZOLAM [Concomitant]
  3. AMITRIPTYLINE HCL [Concomitant]
  4. IMIPRAMINE [Concomitant]
  5. CITALOPRAM HYDROBROMIDE [Concomitant]
  6. ATENOLOL [Concomitant]
  7. XYREM [Suspect]
     Indication: CATAPLEXY
     Dosage: SEE IMAGE
     Route: 048
     Dates: start: 20101206, end: 20110424
  8. XYREM [Suspect]
     Indication: CATAPLEXY
     Dosage: SEE IMAGE
     Route: 048
     Dates: start: 20110425
  9. XYREM [Suspect]
     Indication: CATAPLEXY
     Dosage: SEE IMAGE
     Route: 048
     Dates: start: 20110101
  10. LISINOPRIL [Concomitant]
  11. AMLODIPINE [Concomitant]

REACTIONS (4)
  - DIARRHOEA [None]
  - DEHYDRATION [None]
  - MIGRAINE [None]
  - HYPOTHYROIDISM [None]
